FAERS Safety Report 8506837-1 (Version None)
Quarter: 2012Q3

REPORT INFORMATION
  Report Type: 
  Country: None (occurrence: None)
  Receive Date: 20120712
  Receipt Date: 20120709
  Transmission Date: 20120928
  Serious: Yes (Other)
  Sender: FDA-Public Use
  Company Number: US-PFIZER INC-2012133789

PATIENT
  Sex: Female
  Weight: 70.295 kg

DRUGS (8)
  1. PERCOCET [Concomitant]
     Indication: SPINAL OSTEOARTHRITIS
     Dosage: 5/325MG, 3X/DAY
  2. NEURONTIN [Suspect]
     Indication: SPINAL OSTEOARTHRITIS
     Dosage: 200 MG, 3X/DAY
     Dates: start: 20120418
  3. XANAX [Concomitant]
     Indication: MUSCLE RELAXANT THERAPY
     Dosage: 5 MG, DAILY
  4. NEURONTIN [Suspect]
     Dosage: 100 MG, 3X/DAY
     Dates: start: 20120101
  5. ESTROGENS [Concomitant]
     Indication: HYSTERECTOMY
     Dosage: 2 MG, DAILY
  6. NEURONTIN [Suspect]
     Dosage: UNK
     Dates: end: 20120507
  7. LIOTHYRONINE [Concomitant]
     Indication: THYROID DISORDER
     Dosage: 5 UG, DAILY
  8. LEXAPRO [Concomitant]
     Indication: HYSTERECTOMY
     Dosage: 20 MG, DAILY

REACTIONS (7)
  - EYE DISORDER [None]
  - STRABISMUS [None]
  - VISUAL IMPAIRMENT [None]
  - IMPAIRED DRIVING ABILITY [None]
  - MIGRAINE [None]
  - VISION BLURRED [None]
  - EXTRAOCULAR MUSCLE DISORDER [None]
